FAERS Safety Report 7329963-1 (Version None)
Quarter: 2011Q1

REPORT INFORMATION
  Report Type: 
  Country: None (occurrence: None)
  Receive Date: 20110303
  Receipt Date: 20110301
  Transmission Date: 20110831
  Serious: Yes (Life-Threatening)
  Sender: FDA-Public Use
  Company Number: US-BAYER-2011-019513

PATIENT
  Sex: Female

DRUGS (2)
  1. YAZ [Suspect]
  2. YASMIN [Suspect]

REACTIONS (6)
  - ANXIETY [None]
  - INJURY [None]
  - FEAR [None]
  - EMOTIONAL DISTRESS [None]
  - GALLBLADDER INJURY [None]
  - PAIN [None]
